FAERS Safety Report 13241441 (Version 1)
Quarter: 2017Q1

REPORT INFORMATION
  Report Type: Spontaneous
  Country: GB (occurrence: GB)
  Receive Date: 20170216
  Receipt Date: 20170216
  Transmission Date: 20170428
  Serious: Yes (Other)
  Sender: FDA-Public Use
  Company Number: GB-PFIZER INC-2017063517

PATIENT
  Age: 53 Year
  Sex: Male

DRUGS (10)
  1. GABAPENTIN. [Suspect]
     Active Substance: GABAPENTIN
     Indication: NEURALGIA
     Dosage: 300 MG, 1X/DAY
     Route: 048
     Dates: start: 20170102, end: 20170105
  2. GABAPENTIN. [Suspect]
     Active Substance: GABAPENTIN
     Dosage: DOSE WAS TAPERED OFF AND THEN STOPPED
     Route: 048
     Dates: end: 20170120
  3. GABAPENTIN. [Suspect]
     Active Substance: GABAPENTIN
     Dosage: 300 MG, 2X/DAY
     Route: 048
     Dates: start: 20170105, end: 20170108
  4. DICLOFENAC [Concomitant]
     Active Substance: DICLOFENAC
  5. LOSARTAN. [Concomitant]
     Active Substance: LOSARTAN
  6. SALBUTAMOL [Concomitant]
     Active Substance: ALBUTEROL
  7. ATORVASTATIN [Concomitant]
     Active Substance: ATORVASTATIN
  8. LANSOPRAZOLE. [Concomitant]
     Active Substance: LANSOPRAZOLE
  9. FLUOXETINE [Concomitant]
     Active Substance: FLUOXETINE HYDROCHLORIDE
  10. GABAPENTIN. [Suspect]
     Active Substance: GABAPENTIN
     Dosage: 300 MG, 3X/DAY (FULL DOSE FOR 3 DAYS)
     Route: 048
     Dates: start: 20170108

REACTIONS (14)
  - Dreamy state [Not Recovered/Not Resolved]
  - Muscular weakness [Recovered/Resolved]
  - Aphasia [Unknown]
  - Hypoaesthesia [Unknown]
  - Dysarthria [Not Recovered/Not Resolved]
  - Bradyphrenia [Not Recovered/Not Resolved]
  - Mood swings [Not Recovered/Not Resolved]
  - Cough [Recovering/Resolving]
  - Negative thoughts [Not Recovered/Not Resolved]
  - Limb discomfort [Unknown]
  - Drug ineffective for unapproved indication [Unknown]
  - Malaise [Unknown]
  - Fatigue [Not Recovered/Not Resolved]
  - Dissociation [Unknown]

NARRATIVE: CASE EVENT DATE: 20170105
